FAERS Safety Report 6466216-8 (Version None)
Quarter: 2009Q4

REPORT INFORMATION
  Report Type: 
  Country: None (occurrence: None)
  Receive Date: 20091202
  Receipt Date: 20091119
  Transmission Date: 20100525
  Serious: No
  Sender: FDA-Public Use
  Company Number: PHHY2009JP42129

PATIENT
  Age: 73 Year
  Sex: Male

DRUGS (3)
  1. TEGRETOL [Suspect]
     Indication: EPILEPSY
     Dosage: UNK
     Route: 048
     Dates: start: 20090925, end: 20090927
  2. WARFARIN SODIUM [Suspect]
     Dosage: UNK
  3. GASTER [Suspect]
     Dosage: UNK

REACTIONS (1)
  - BRADYCARDIA [None]
